FAERS Safety Report 18341262 (Version 1)
Quarter: 2020Q4

REPORT INFORMATION
  Report Type: Spontaneous
  Country: FR (occurrence: FR)
  Receive Date: 20201003
  Receipt Date: 20201003
  Transmission Date: 20210113
  Serious: Yes (Other)
  Sender: FDA-Public Use
  Company Number: FR-TEVA-2020-FR-1833807

PATIENT
  Age: 44 Year
  Sex: Male

DRUGS (4)
  1. CLOZAPINE. [Interacting]
     Active Substance: CLOZAPINE
     Indication: SCHIZOPHRENIA
     Dosage: 300MG
     Route: 048
     Dates: start: 2018
  2. LOXAPINE (SUCCINATE DE) [Interacting]
     Active Substance: LOXAPINE SUCCINATE
     Indication: PSYCHOTIC DISORDER
     Dosage: 50 MG-50MG-50MG-50MG AND 100 MG AS NEEDED AT BEDTIME, 150MG
     Route: 048
     Dates: start: 2018, end: 20200902
  3. DIAZEPAM. [Suspect]
     Active Substance: DIAZEPAM
     Indication: PSYCHOTIC DISORDER
     Dosage: 30MG
     Route: 048
     Dates: start: 2018, end: 20200724
  4. CLOPIXOL [Interacting]
     Active Substance: ZUCLOPENTHIXOL
     Indication: SCHIZOPHRENIA
     Dosage: 450 MILLIGRAM DAILY; 50MG-25MG-50MG-0, 150MG
     Route: 048
     Dates: start: 2018, end: 20200724

REACTIONS (6)
  - Akathisia [Recovered/Resolved]
  - Dysarthria [Not Recovered/Not Resolved]
  - Salivary hypersecretion [Recovering/Resolving]
  - Weight increased [Recovering/Resolving]
  - Drug interaction [Unknown]
  - Somnolence [Recovering/Resolving]

NARRATIVE: CASE EVENT DATE: 201905
